FAERS Safety Report 8312356 (Version 8)
Quarter: 2014Q1

REPORT INFORMATION
  Report Type: Report from Study
  Country: TW (occurrence: TW)
  Receive Date: 20111227
  Receipt Date: 20140313
  Transmission Date: 20141002
  Serious: Yes (Hospitalization)
  Sender: FDA-Public Use
  Company Number: PHHO2011TW09929

PATIENT
  Age: 84 Year
  Sex: Male
  Weight: 51.8 kg

DRUGS (40)
  1. LCZ696 [Suspect]
     Indication: CARDIAC FAILURE CHRONIC
     Dosage: 200 MG, UNK
     Route: 048
     Dates: start: 20100731, end: 20110608
  2. LCZ696 [Suspect]
     Dosage: 200 MG, UNK
     Route: 048
     Dates: start: 20110612, end: 20110919
  3. LCZ696 [Suspect]
     Dosage: 200 MG, UNK
     Route: 048
     Dates: start: 20111001
  4. LCZ696 [Suspect]
     Dosage: 200 MG, UNK
     Route: 048
     Dates: start: 20120322, end: 20120717
  5. LCZ696 [Suspect]
     Dosage: UNK
     Route: 048
     Dates: start: 20120719, end: 20120724
  6. LCZ696 [Suspect]
     Dosage: UNK
     Route: 048
     Dates: start: 20120725, end: 20121001
  7. LCZ696 [Suspect]
     Dosage: UNK
     Route: 048
     Dates: start: 20121012, end: 20121114
  8. LCZ696 [Suspect]
     Dosage: UNK
     Route: 048
     Dates: start: 20121115, end: 20130227
  9. LCZ696 [Suspect]
     Dosage: UNK
     Route: 048
     Dates: start: 20130228
  10. LCZ696 [Suspect]
     Indication: CARDIAC FAILURE CHRONIC
     Dosage: LEVEL 2/ LEVEL 3 BID
     Route: 048
     Dates: start: 20100619, end: 20100729
  11. COMPARATOR ENALAPRIL [Suspect]
     Indication: CARDIAC FAILURE CHRONIC
     Dosage: LEVEL 2 BID
     Route: 048
     Dates: start: 20100604, end: 20100617
  12. FUROSEMIDE [Suspect]
     Indication: CARDIAC FAILURE CHRONIC
     Dosage: 40 MG, BID
     Route: 048
  13. FUROSEMIDE [Suspect]
     Indication: ANGINA PECTORIS
     Dosage: 40 MG, QD
     Route: 048
     Dates: start: 20100528, end: 20110919
  14. FUROSEMIDE [Suspect]
     Dosage: 40 MG, QD
     Route: 048
     Dates: start: 20120822, end: 20130505
  15. CARVEDILOL [Concomitant]
     Indication: HYPERTENSION
     Dosage: 25 MG, QD
     Route: 048
  16. CARVEDILOL [Concomitant]
     Indication: CARDIAC FAILURE CHRONIC
     Dosage: 25 MG, BID
     Route: 048
     Dates: start: 20100429
  17. RANITIDINE [Concomitant]
     Indication: GASTROOESOPHAGEAL REFLUX DISEASE
     Dosage: 150 MG, QD
  18. AMBROXOL [Concomitant]
     Indication: ASTHMA
     Dosage: 30 MG, BID
     Route: 048
     Dates: start: 20100709, end: 20110919
  19. AMBROXOL [Concomitant]
     Indication: COUGH
  20. ASPIRIN [Concomitant]
     Indication: ANTIPLATELET THERAPY
     Dosage: 100 MG, QD
     Route: 048
     Dates: start: 20110121
  21. ASPIRIN [Concomitant]
     Indication: PROPHYLAXIS
  22. BENZBROMARONE [Concomitant]
     Indication: HYPERURICAEMIA
     Dosage: 50 MG, QD
     Route: 048
     Dates: start: 20100816
  23. CLOPIDOGREL [Concomitant]
  24. ISOSORBIDE MONONITRATE [Concomitant]
     Dosage: 10 MG, BID
     Route: 048
     Dates: start: 20120528
  25. CEFATRIZINE [Concomitant]
  26. VYTORIN [Concomitant]
  27. COMBIVENT [Concomitant]
  28. ACETAMINOPHEN [Concomitant]
  29. LIDOCAINE [Concomitant]
  30. TETANUS TOXOID [Concomitant]
  31. DICLOFENAC [Concomitant]
  32. TAMSULOSIN [Concomitant]
     Indication: BENIGN PROSTATIC HYPERPLASIA
     Dosage: 0.2 MG, HS
     Route: 048
     Dates: start: 20130305
  33. FAMOTIDINE [Concomitant]
     Indication: GASTROOESOPHAGEAL REFLUX DISEASE
     Dosage: 20 MG, QD
     Route: 048
     Dates: start: 20120709
  34. DOMPERIDONE [Concomitant]
     Indication: GASTROOESOPHAGEAL REFLUX DISEASE
     Dosage: 10 MG, BID
     Route: 048
     Dates: start: 20130227, end: 20130307
  35. DOMPERIDONE [Concomitant]
     Dosage: 10 MG, BID
     Route: 048
     Dates: start: 20130311
  36. SENNOSIDE [Concomitant]
     Indication: PROPHYLAXIS
     Dosage: 40 MG, HS
     Route: 048
     Dates: start: 20121115
  37. SENNOSIDE [Concomitant]
     Dosage: 20 MG, QD
     Route: 048
     Dates: start: 20130321
  38. DEXTROMETHORPHAN [Concomitant]
     Indication: CHRONIC OBSTRUCTIVE PULMONARY DISEASE
     Dosage: 30 MG, TID
     Route: 048
     Dates: start: 20120306
  39. DIGOXIN [Concomitant]
     Indication: CARDIAC FAILURE CHRONIC
     Dosage: 0.125 MG, QD
     Route: 048
     Dates: start: 20130227, end: 20130228
  40. DIGOXIN [Concomitant]
     Dosage: 0.125 UNK, UNK
     Route: 048
     Dates: start: 20130321

REACTIONS (6)
  - Hypovolaemic shock [Recovered/Resolved]
  - Left ventricular dysfunction [Recovered/Resolved]
  - Renal failure acute [Recovered/Resolved]
  - Cholecystitis [Recovered/Resolved]
  - Device dislocation [Recovered/Resolved]
  - Urinary tract infection [Recovering/Resolving]
